FAERS Safety Report 6791638-5 (Version None)
Quarter: 2010Q2

REPORT INFORMATION
  Report Type: 
  Country: None (occurrence: None)
  Receive Date: 20100624
  Receipt Date: 20090625
  Transmission Date: 20101027
  Serious: Yes (Other)
  Sender: FDA-Public Use
  Company Number: US-PFIZER INC-2008057482

PATIENT
  Sex: Female

DRUGS (6)
  1. PREMPRO [Suspect]
     Indication: HORMONE REPLACEMENT THERAPY
     Dosage: 0.625/2.5MG
     Dates: start: 19960501, end: 19980810
  2. PREMPRO [Suspect]
     Dosage: 0.625/5MG
     Dates: start: 19980909, end: 20010516
  3. LEXAPRO [Concomitant]
     Indication: ANXIETY
     Dosage: UNK
     Dates: start: 20000101, end: 20010101
  4. AUGMENTIN '125' [Concomitant]
     Indication: ANTIBIOTIC THERAPY
     Dosage: UNK
     Dates: start: 20000101, end: 20010101
  5. ATIVAN [Concomitant]
     Indication: NAUSEA
     Dosage: UNK
     Dates: start: 20010101, end: 20010101
  6. CEPHALEXIN [Concomitant]
     Indication: ANTIBIOTIC THERAPY
     Dosage: UNK
     Dates: start: 20010101, end: 20010101

REACTIONS (1)
  - BREAST CANCER FEMALE [None]
